FAERS Safety Report 5054026-8 (Version None)
Quarter: 2006Q3

REPORT INFORMATION
  Report Type: 
  Country: None (occurrence: None)
  Receive Date: 20060713
  Receipt Date: 20060629
  Transmission Date: 20061208
  Serious: Yes (Hospitalization)
  Sender: FDA-Public Use
  Company Number: 35705

PATIENT
  Age: 47 Year
  Sex: Female

DRUGS (3)
  1. TROPICAMIDE [Suspect]
     Indication: OPHTHALMOLOGICAL EXAMINATION
     Dosage: OPHT
     Route: 047
  2. PYRIDOSTIGMINE BROMIDE [Concomitant]
  3. ATROPINE [Concomitant]

REACTIONS (6)
  - CHOLINERGIC SYNDROME [None]
  - DIZZINESS [None]
  - FATIGUE [None]
  - MYDRIASIS [None]
  - PARALYSIS [None]
  - RESPIRATORY DISTRESS [None]
